FAERS Safety Report 5107278-X (Version None)
Quarter: 2006Q3

REPORT INFORMATION
  Report Type: 
  Country: None (occurrence: None)
  Receive Date: 20060913
  Receipt Date: 20060828
  Transmission Date: 20061208
  Serious: Yes (Other)
  Sender: FDA-Public Use
  Company Number: GXKR2006NL05537

PATIENT
  Age: 62 Year
  Sex: Male

DRUGS (7)
  1. DIPYRIDAMOLE [Suspect]
     Indication: DRUG USE FOR UNKNOWN INDICATION
     Dosage: 75 MG, BID, ORAL
     Route: 048
     Dates: start: 20060621, end: 20060717
  2. LISINOPRIL [Concomitant]
  3. LYRICA [Concomitant]
  4. SELEKTINE (PRAVASTATIN SODIUM) [Concomitant]
  5. MOVICOLON (MACROGOL, POTASSIUM CHLORIDE, SODIUM BICARBONATE, SODIUM CH [Concomitant]
  6. ACETYLSALICYLZUUR (ACETYLSALICYLIC ACID) [Concomitant]
  7. BISOPROLOL FUMARATE [Concomitant]

REACTIONS (4)
  - APNOEA [None]
  - FATIGUE [None]
  - MUSCLE SPASMS [None]
  - PAIN [None]
